FAERS Safety Report 22209348 (Version 1)
Quarter: 2023Q2

REPORT INFORMATION
  Report Type: Other
  Country: US (occurrence: None)
  Receive Date: 20230413
  Receipt Date: 20230413
  Transmission Date: 20230721
  Serious: Yes (Hospitalization)
  Sender: FDA-Public Use
  Company Number: US-ROCHE-3329468

PATIENT
  Age: 74 Year
  Sex: Female

DRUGS (1)
  1. ESBRIET [Suspect]
     Active Substance: PIRFENIDONE
     Indication: Pulmonary fibrosis
     Dosage: TAKE 3 CAPSULE(S) BY MOUTH 3 TIMES A DAY WITH FOOD
     Route: 048

REACTIONS (1)
  - Pneumonia [Unknown]
